FAERS Safety Report 14581787 (Version 2)
Quarter: 2018Q4

REPORT INFORMATION
  Report Type: Report from Study
  Country: CA (occurrence: CA)
  Receive Date: 20180228
  Receipt Date: 20181101
  Transmission Date: 20190204
  Serious: Yes (Hospitalization, Other)
  Sender: FDA-Public Use
  Company Number: CA-AMGEN-CANSL2018024536

PATIENT
  Age: 64 Year
  Sex: Female
  Weight: 31 kg

DRUGS (1)
  1. PROLIA [Suspect]
     Active Substance: DENOSUMAB
     Indication: OSTEOPOROSIS POSTMENOPAUSAL
     Dosage: 60 MG/ML, UNK
     Route: 065
     Dates: start: 20170830, end: 20170830

REACTIONS (12)
  - Bone pain [Recovering/Resolving]
  - Gastrointestinal surgery [Unknown]
  - Hypertension [Unknown]
  - Muscular weakness [Recovering/Resolving]
  - Hypotension [Recovering/Resolving]
  - Dizziness [Recovering/Resolving]
  - Arthralgia [Unknown]
  - Fatigue [Recovering/Resolving]
  - General physical health deterioration [Unknown]
  - Syncope [Unknown]
  - Feeling abnormal [Recovering/Resolving]
  - Arrhythmia [Recovering/Resolving]

NARRATIVE: CASE EVENT DATE: 2017
